FAERS Safety Report 21316112 (Version 1)
Quarter: 2022Q3

REPORT INFORMATION
  Report Type: Spontaneous
  Country: RU (occurrence: RU)
  Receive Date: 20220910
  Receipt Date: 20220910
  Transmission Date: 20221027
  Serious: Yes (Death, Other)
  Sender: FDA-Public Use
  Company Number: RU-009507513-2208RUS008432

PATIENT
  Age: 47 Year
  Sex: Male

DRUGS (1)
  1. PEMBROLIZUMAB [Suspect]
     Active Substance: PEMBROLIZUMAB
     Dosage: UNK

REACTIONS (5)
  - Death [Fatal]
  - Suspected COVID-19 [Unknown]
  - Diarrhoea [Unknown]
  - Pneumonitis [Unknown]
  - Plasmapheresis [Unknown]

NARRATIVE: CASE EVENT DATE: 20220903
